FAERS Safety Report 8989770 (Version 1)
Quarter: 2012Q4

REPORT INFORMATION
  Report Type: 
  Country: US (occurrence: US)
  Receive Date: 20121228
  Receipt Date: 20121228
  Transmission Date: 20130627
  Serious: Yes (Death)
  Sender: FDA-Public Use
  Company Number: US-PFIZER INC-2012329894

PATIENT
  Age: 58 Year
  Sex: Male

DRUGS (4)
  1. ZOLPIDEM TARTRATE [Suspect]
     Dosage: UNK
  2. METAXALONE [Suspect]
     Dosage: UNK
  3. CITALOPRAM [Suspect]
     Dosage: UNK
  4. DIPHENHYDRAMINE [Suspect]
     Dosage: UNK

REACTIONS (2)
  - Completed suicide [Fatal]
  - Toxicity to various agents [Fatal]
